FAERS Safety Report 10673114 (Version 1)
Quarter: 2014Q4

REPORT INFORMATION
  Report Type: Report from Study
  Country: FR (occurrence: FR)
  Receive Date: 20141224
  Receipt Date: 20141224
  Transmission Date: 20150529
  Serious: Yes (Other)
  Sender: FDA-Public Use
  Company Number: FR-ROCHE-1509048

PATIENT

DRUGS (1)
  1. RITUXIMAB [Suspect]
     Active Substance: RITUXIMAB
     Indication: THROMBOCYTOPENIA
     Dosage: FOR 4 WEEKS
     Route: 042

REACTIONS (4)
  - Pneumonia [Unknown]
  - Neoplasm malignant [Unknown]
  - Hypogammaglobulinaemia [Unknown]
  - Guillain-Barre syndrome [Unknown]
